FAERS Safety Report 10608125 (Version 4)
Quarter: 2015Q2

REPORT INFORMATION
  Report Type: Spontaneous
  Country: CA (occurrence: CA)
  Receive Date: 20141125
  Receipt Date: 20150604
  Transmission Date: 20150821
  Serious: Yes (Other)
  Sender: FDA-Public Use
  Company Number: CA-ASTELLAS-2014US018238

PATIENT
  Age: 7 Year
  Sex: Male

DRUGS (4)
  1. PROGRAF [Suspect]
     Active Substance: TACROLIMUS\TACROLIMUS ANHYDROUS
     Dosage: 2.5 UNK, UNK
     Route: 048
  2. PROGRAF [Suspect]
     Active Substance: TACROLIMUS\TACROLIMUS ANHYDROUS
     Indication: NEPHROTIC SYNDROME
     Route: 048
     Dates: start: 201106, end: 201410
  3. PROGRAF [Suspect]
     Active Substance: TACROLIMUS\TACROLIMUS ANHYDROUS
     Dosage: UNK UNK, UNKNOWN FREQ.
     Route: 048
     Dates: start: 201503
  4. PROGRAF [Suspect]
     Active Substance: TACROLIMUS\TACROLIMUS ANHYDROUS
     Route: 048
     Dates: start: 20150205

REACTIONS (5)
  - Focal segmental glomerulosclerosis [Unknown]
  - Drug ineffective for unapproved indication [Unknown]
  - Deafness unilateral [Unknown]
  - Renal impairment [Unknown]
  - Nephrotic syndrome [Unknown]

NARRATIVE: CASE EVENT DATE: 201503
